FAERS Safety Report 18744213 (Version 2)
Quarter: 2021Q1

REPORT INFORMATION
  Report Type: Spontaneous
  Country: JP (occurrence: JP)
  Receive Date: 20210115
  Receipt Date: 20210122
  Transmission Date: 20210419
  Serious: No
  Sender: FDA-Public Use
  Company Number: JP-TERSERA THERAPEUTICS LLC-TSR2018001814

PATIENT

DRUGS (2)
  1. BICALUTAMIDE. [Concomitant]
     Active Substance: BICALUTAMIDE
     Indication: PROSTATE CANCER
     Dosage: DOSE UNKNOWN
     Route: 065
  2. ZOLADEX [Suspect]
     Active Substance: GOSERELIN ACETATE
     Indication: PROSTATE CANCER
     Dosage: 10.8MG, Q12 WEEKS
     Route: 058

REACTIONS (2)
  - Wound [Unknown]
  - Purpura senile [Unknown]
